FAERS Safety Report 7997691-5 (Version None)
Quarter: 2011Q4

REPORT INFORMATION
  Report Type: 
  Country: None (occurrence: None)
  Receive Date: 20111221
  Receipt Date: 20111215
  Transmission Date: 20120403
  Serious: Yes (Other)
  Sender: FDA-Public Use
  Company Number: CA-PFIZER INC-2011280980

PATIENT
  Age: 22 Year
  Sex: Female

DRUGS (2)
  1. VARENICLINE TARTRATE [Suspect]
     Dosage: 1 MG, 2X/DAY ONCE IN MORNING AND ONCE IN EVENING
     Route: 048
     Dates: start: 20111101, end: 20111101
  2. VARENICLINE TARTRATE [Suspect]
     Indication: SMOKING CESSATION THERAPY
     Dosage: 0.5 MG, UNK
     Route: 048
     Dates: start: 20111101, end: 20111101

REACTIONS (7)
  - DYSSTASIA [None]
  - CHEST PAIN [None]
  - AMNESIA [None]
  - COLD SWEAT [None]
  - DRUG INEFFECTIVE [None]
  - NAUSEA [None]
  - DEPRESSED MOOD [None]
